FAERS Safety Report 9914802 (Version 2)
Quarter: 2014Q1

REPORT INFORMATION
  Report Type: Report from Study
  Country: US (occurrence: US)
  Receive Date: 20140220
  Receipt Date: 20140321
  Transmission Date: 20141002
  Serious: Yes (Hospitalization)
  Sender: FDA-Public Use
  Company Number: PHEH2014US003306

PATIENT
  Age: 86 Year
  Sex: Female
  Weight: 57.14 kg

DRUGS (1)
  1. GLEEVEC [Suspect]
     Indication: CHRONIC MYELOID LEUKAEMIA
     Dosage: 100 MG, DAILY
     Route: 048

REACTIONS (5)
  - Fall [Recovering/Resolving]
  - Gastrooesophageal reflux disease [Unknown]
  - Arthralgia [Unknown]
  - Chest pain [Unknown]
  - Asthenia [Unknown]
